FAERS Safety Report 8518141-6 (Version None)
Quarter: 2012Q3

REPORT INFORMATION
  Report Type: 
  Country: None (occurrence: None)
  Receive Date: 20120718
  Receipt Date: 20110929
  Transmission Date: 20120928
  Serious: Yes (Hospitalization)
  Sender: FDA-Public Use
  Company Number: US-BRISTOL-MYERS SQUIBB COMPANY-16115214

PATIENT
  Age: 81 Year
  Sex: Male

DRUGS (3)
  1. PLAVIX [Concomitant]
  2. COUMADIN [Suspect]
  3. SOLIRIS [Suspect]
     Indication: PAROXYSMAL NOCTURNAL HAEMOGLOBINURIA
     Dosage: INFUSION
     Route: 042

REACTIONS (2)
  - ASTHENIA [None]
  - OESOPHAGEAL HAEMORRHAGE [None]
